FAERS Safety Report 17077035 (Version 2)
Quarter: 2020Q4

REPORT INFORMATION
  Report Type: Spontaneous
  Country: JP (occurrence: JP)
  Receive Date: 20191126
  Receipt Date: 20201022
  Transmission Date: 20210113
  Serious: Yes (Life-Threatening, Hospitalization)
  Sender: FDA-Public Use
  Company Number: JP-ELI_LILLY_AND_COMPANY-JP201911011052

PATIENT
  Age: 62 Year
  Sex: Male
  Weight: 67 kg

DRUGS (8)
  1. JANUVIA [Concomitant]
     Active Substance: SITAGLIPTIN PHOSPHATE
     Indication: TYPE 2 DIABETES MELLITUS
     Dosage: 50 MG, DAILY
     Route: 048
     Dates: start: 20190212, end: 20191220
  2. THYRADIN-S [Concomitant]
     Active Substance: LEVOTHYROXINE
     Indication: HYPOTHYROIDISM
     Dosage: 50 UG, DAILY
     Route: 048
     Dates: end: 20191210
  3. ZINC. [Concomitant]
     Active Substance: ZINC
     Indication: HYPOZINCAEMIA
     Dosage: 150 MG, DAILY
     Route: 048
     Dates: end: 20191024
  4. FEBURIC [Concomitant]
     Active Substance: FEBUXOSTAT
     Indication: HYPERURICAEMIA
     Dosage: 10 MG, DAILY
     Route: 048
     Dates: end: 20191210
  5. MECOBALAMIN [Concomitant]
     Active Substance: METHYLCOBALAMIN
     Indication: ANAEMIA MACROCYTIC
     Dosage: 1500 UG, DAILY
     Route: 048
     Dates: start: 20190108, end: 20191106
  6. BEZAFIBRATE [Concomitant]
     Active Substance: BEZAFIBRATE
     Indication: HYPERLIPIDAEMIA
     Dosage: 400 MG, DAILY
     Route: 048
     Dates: end: 20191024
  7. CYRAMZA [Suspect]
     Active Substance: RAMUCIRUMAB
     Indication: HEPATOCELLULAR CARCINOMA
     Dosage: 500 MG, CYCLICAL
     Route: 041
     Dates: start: 20191009, end: 20191030
  8. TAKECAB [Concomitant]
     Active Substance: VONOPRAZAN FUMARATE
     Indication: GASTROOESOPHAGEAL REFLUX DISEASE
     Dosage: 20 MG, DAILY
     Route: 048
     Dates: end: 20191220

REACTIONS (3)
  - Gastric ulcer haemorrhage [Recovering/Resolving]
  - Hepatic encephalopathy [Recovering/Resolving]
  - Oesophageal varices haemorrhage [Recovering/Resolving]

NARRATIVE: CASE EVENT DATE: 20191030
